FAERS Safety Report 14015512 (Version 1)
Quarter: 2017Q3

REPORT INFORMATION
  Report Type: Spontaneous
  Country: GB (occurrence: GB)
  Receive Date: 20170927
  Receipt Date: 20170927
  Transmission Date: 20171128
  Serious: Yes (Death, Other)
  Sender: FDA-Public Use
  Company Number: GB-TELIGENT, INC-IGIL20170415

PATIENT
  Sex: Male

DRUGS (1)
  1. CEFTAZIDIME. [Suspect]
     Active Substance: CEFTAZIDIME
     Indication: PRODUCT USED FOR UNKNOWN INDICATION
     Route: 042

REACTIONS (5)
  - Paraesthesia [Unknown]
  - Chest pain [Unknown]
  - Anaphylactic reaction [Unknown]
  - Death [Fatal]
  - Dyspnoea [Unknown]
